FAERS Safety Report 5907730-0 (Version None)
Quarter: 2008Q3

REPORT INFORMATION
  Report Type: 
  Country: None (occurrence: None)
  Receive Date: 20080929
  Receipt Date: 20080917
  Transmission Date: 20090109
  Serious: No
  Sender: FDA-Public Use
  Company Number: 2008-184238-NL

PATIENT
  Age: 84 Year
  Sex: Female

DRUGS (11)
  1. MIRTAZAPINE [Suspect]
     Dosage: 15 MG/30 MG/45 MG
     Route: 048
     Dates: start: 20080413, end: 20080425
  2. MIRTAZAPINE [Suspect]
     Dosage: 15 MG/30 MG/45 MG
     Route: 048
     Dates: start: 20080426, end: 20080509
  3. MIRTAZAPINE [Suspect]
     Dosage: 15 MG/30 MG/45 MG
     Route: 048
     Dates: start: 20080510
  4. VENLAFAXINE HYDROCHLORIDE [Suspect]
     Dosage: 150 MG/187.5 MG/150 MG/75 MG
     Route: 048
     Dates: start: 20080524, end: 20080618
  5. VENLAFAXINE HYDROCHLORIDE [Suspect]
     Dosage: 150 MG/187.5 MG/150 MG/75 MG
     Route: 048
     Dates: start: 20080619, end: 20080628
  6. VENLAFAXINE HYDROCHLORIDE [Suspect]
     Dosage: 150 MG/187.5 MG/150 MG/75 MG
     Route: 048
     Dates: start: 20080629, end: 20080704
  7. VENLAFAXINE HYDROCHLORIDE [Suspect]
     Dosage: 150 MG/187.5 MG/150 MG/75 MG
     Route: 048
     Dates: start: 20080705, end: 20080711
  8. DIOVAN HCT [Suspect]
     Indication: DIURETIC THERAPY
     Dosage: DF
     Route: 048
     Dates: start: 20080505, end: 20080627
  9. CLOPIDOGREL BISULFATE [Concomitant]
  10. PANTOPRAZOLE SODIUM [Concomitant]
  11. ZOLPIDEM [Concomitant]

REACTIONS (1)
  - HYPONATRAEMIA [None]
